FAERS Safety Report 15959038 (Version 10)
Quarter: 2022Q2

REPORT INFORMATION
  Report Type: Report from Study
  Country: US (occurrence: US)
  Receive Date: 20190214
  Receipt Date: 20220525
  Transmission Date: 20220720
  Serious: Yes (Hospitalization)
  Sender: FDA-Public Use
  Company Number: US-NOVARTISPH-PHEH2019US006275

PATIENT
  Age: 59 Year
  Sex: Female

DRUGS (3)
  1. ENTRESTO [Suspect]
     Active Substance: SACUBITRIL\VALSARTAN
     Indication: Cardiac failure
     Dosage: UNK
     Route: 048
  2. ENTRESTO [Suspect]
     Active Substance: SACUBITRIL\VALSARTAN
     Indication: Cardiac failure chronic
     Dosage: UNK (24/26 MG)
     Route: 065
  3. LASIX [Concomitant]
     Active Substance: FUROSEMIDE
     Indication: Product used for unknown indication
     Dosage: UNK
     Route: 065

REACTIONS (21)
  - Ischaemic hepatitis [Unknown]
  - Renal impairment [Unknown]
  - Feeling abnormal [Unknown]
  - Weight decreased [Unknown]
  - Blood cholesterol abnormal [Unknown]
  - Insomnia [Unknown]
  - Depression [Unknown]
  - Ill-defined disorder [Unknown]
  - Fear [Unknown]
  - Pain [Unknown]
  - Sleep disorder [Unknown]
  - Melatonin deficiency [Unknown]
  - Fatigue [Unknown]
  - Crying [Unknown]
  - Orthostatic hypotension [Unknown]
  - Cough [Unknown]
  - Dizziness [Unknown]
  - Ejection fraction abnormal [Unknown]
  - Incorrect dose administered [Unknown]
  - Product dose omission issue [Unknown]
  - Drug ineffective [Unknown]

NARRATIVE: CASE EVENT DATE: 20220324
